FAERS Safety Report 23987596 (Version 1)
Quarter: 2024Q2

REPORT INFORMATION
  Report Type: Report from Study
  Country: US (occurrence: US)
  Receive Date: 20240618
  Receipt Date: 20240618
  Transmission Date: 20240716
  Serious: Yes (Hospitalization, Other)
  Sender: FDA-Public Use
  Company Number: US-ABBVIE-5804073

PATIENT
  Sex: Female

DRUGS (3)
  1. HUMIRA [Suspect]
     Active Substance: ADALIMUMAB
     Indication: Product used for unknown indication
     Route: 058
  2. SKYRIZI [Suspect]
     Active Substance: RISANKIZUMAB-RZAA
     Indication: Product used for unknown indication
     Route: 058
  3. RINVOQ [Suspect]
     Active Substance: UPADACITINIB
     Indication: Product used for unknown indication
     Route: 048
     Dates: start: 2023

REACTIONS (11)
  - Colectomy [Unknown]
  - Pyoderma gangrenosum [Recovered/Resolved]
  - Colitis [Recovering/Resolving]
  - Abdominal pain [Recovering/Resolving]
  - Scar [Unknown]
  - Skin fissures [Recovering/Resolving]
  - Skin disorder [Unknown]
  - Dehydration [Not Recovered/Not Resolved]
  - Gastrointestinal tube insertion [Recovered/Resolved]
  - Central venous catheterisation [Recovered/Resolved]
  - Pouchitis [Unknown]
